FAERS Safety Report 7555346-5 (Version None)
Quarter: 2011Q2

REPORT INFORMATION
  Report Type: 
  Country: None (occurrence: None)
  Receive Date: 20110617
  Receipt Date: 20110607
  Transmission Date: 20111010
  Serious: Yes (Hospitalization, Other)
  Sender: FDA-Public Use
  Company Number: US-AMGEN-USASP2011029431

PATIENT
  Age: 64 Year
  Sex: Female

DRUGS (1)
  1. ENBREL [Suspect]
     Indication: RHEUMATOID ARTHRITIS
     Dosage: 25 MG, 2 TIMES/WK
     Dates: start: 20100601, end: 20110301

REACTIONS (10)
  - RECTAL CANCER [None]
  - OEDEMA PERIPHERAL [None]
  - PAIN IN EXTREMITY [None]
  - PERINEAL ABSCESS [None]
  - INTESTINAL RESECTION [None]
  - ERYTHEMA [None]
  - CONTUSION [None]
  - ARTHRALGIA [None]
  - COLOSTOMY [None]
  - JOINT RANGE OF MOTION DECREASED [None]
